FAERS Safety Report 6956934 (Version 2)
Quarter: 2014Q3

REPORT INFORMATION
  Report Type: Spontaneous
  Country: IT (occurrence: None)
  Receive Date: 20090316
  Receipt Date: 20140822
  Transmission Date: 20150326
  Serious: Yes (Hospitalization, Other)
  Sender: FDA-Public Use
  Company Number: 213008

PATIENT
  Age: 12 Year
  Sex: Male

DRUGS (6)
  1. PARACETAMOL [Concomitant]
     Active Substance: ACETAMINOPHEN
  2. METHOTREXATE [Suspect]
     Active Substance: METHOTREXATE
     Indication: PRODUCT USED FOR UNKNOWN INDICATION
     Dosage: 5 G/M2, INTRAVENOUS
     Route: 042
     Dates: start: 20090218, end: 20090218
  3. MERCAPTOPURINE. [Concomitant]
     Active Substance: MERCAPTOPURINE
  4. ONDANSETRON [Concomitant]
     Active Substance: ONDANSETRON
  5. FUROSEMIDE. [Concomitant]
     Active Substance: FUROSEMIDE
  6. ACYCLOVIR. [Concomitant]
     Active Substance: ACYCLOVIR

REACTIONS (2)
  - Rash [None]
  - Renal failure acute [None]

NARRATIVE: CASE EVENT DATE: 20090218
